FAERS Safety Report 4914219-4 (Version None)
Quarter: 2006Q1

REPORT INFORMATION
  Report Type: 
  Country: None (occurrence: None)
  Receive Date: 20060213
  Receipt Date: 20060207
  Transmission Date: 20060701
  Serious: Yes (Hospitalization)
  Sender: FDA-Public Use
  Company Number: 2006BI002241

PATIENT
  Age: 39 Year
  Sex: Female

DRUGS (2)
  1. AVONEX [Suspect]
     Indication: MULTIPLE SCLEROSIS
     Dosage: 30 UG;QW; IM
     Route: 030
     Dates: start: 20041201
  2. LIORESAL [Concomitant]

REACTIONS (6)
  - HYPOTRICHOSIS [None]
  - IMPAIRED HEALING [None]
  - INFLAMMATION OF WOUND [None]
  - SUTURE RELATED COMPLICATION [None]
  - VARICOSE VEIN [None]
  - WOUND COMPLICATION [None]
